FAERS Safety Report 5740837-X (Version None)
Quarter: 2008Q2

REPORT INFORMATION
  Report Type: 
  Country: None (occurrence: None)
  Receive Date: 20080516
  Receipt Date: 20080506
  Transmission Date: 20081010
  Serious: Yes (Other)
  Sender: FDA-Public Use
  Company Number: US-GENENTECH-245632

PATIENT
  Sex: Male
  Weight: 48.9 kg

DRUGS (2)
  1. NUTROPIN AQ [Suspect]
     Indication: UNEVALUABLE EVENT
     Dosage: 2.6 UNK, UNKNOWN
     Route: 058
     Dates: start: 20070201, end: 20070602
  2. TESTOSTERONE [Concomitant]
     Indication: DRUG USE FOR UNKNOWN INDICATION
     Dosage: 100 MG, 1/MONTH
     Route: 030
     Dates: start: 20070202

REACTIONS (2)
  - BONE DENSITY DECREASED [None]
  - SCOLIOSIS [None]
